FAERS Safety Report 8116685 (Version 6)
Quarter: 2016Q2

REPORT INFORMATION
  Report Type: Spontaneous
  Country: US (occurrence: US)
  Receive Date: 20110901
  Receipt Date: 20160526
  Transmission Date: 20160815
  Serious: Yes (Hospitalization)
  Sender: FDA-Public Use
  Company Number: US-PFIZER INC-2011201661

PATIENT
  Age: 67 Year
  Sex: Female
  Weight: 52.61 kg

DRUGS (7)
  1. LISINOPRIL. [Suspect]
     Active Substance: LISINOPRIL
     Dosage: UNK
     Dates: start: 20070210
  2. PREMARIN [Concomitant]
     Active Substance: ESTROGENS, CONJUGATED
     Indication: HORMONE REPLACEMENT THERAPY
     Dosage: 1.25 MG, UNK
     Dates: start: 2011
  3. HYDROCHLOROTHIAZIDE/TRIAMTERENE [Suspect]
     Active Substance: HYDROCHLOROTHIAZIDE\TRIAMTERENE
     Dosage: ^3.75MG^
     Dates: start: 20060622
  4. TRIAMTERENE. [Suspect]
     Active Substance: TRIAMTERENE
     Dosage: UNK
     Dates: start: 200702
  5. SYNTHROID [Concomitant]
     Active Substance: LEVOTHYROXINE SODIUM
     Indication: HYPOTHYROIDISM
     Dosage: 88 UG, UNK
     Dates: start: 2005
  6. LISINOPRIL. [Suspect]
     Active Substance: LISINOPRIL
     Dosage: UNK
     Dates: start: 200604
  7. NIFEDIPINE. [Suspect]
     Active Substance: NIFEDIPINE
     Dosage: 10 MG, 1X/DAY
     Dates: start: 20060429

REACTIONS (14)
  - Heart rate irregular [Unknown]
  - Drug hypersensitivity [Unknown]
  - Disorientation [Unknown]
  - Feeling abnormal [Recovered/Resolved]
  - Nausea [Unknown]
  - Dyspnoea [Recovered/Resolved]
  - Headache [Unknown]
  - Swelling face [Unknown]
  - Hypersensitivity [Unknown]
  - Feeling jittery [Unknown]
  - Palpitations [Recovered/Resolved]
  - Dizziness [Recovered/Resolved]
  - Product substitution issue [None]
  - Reaction to drug excipients [None]

NARRATIVE: CASE EVENT DATE: 200702
